FAERS Safety Report 23178964 (Version 2)
Quarter: 2025Q1

REPORT INFORMATION
  Report Type: Spontaneous
  Country: DE (occurrence: DE)
  Receive Date: 20231113
  Receipt Date: 20250318
  Transmission Date: 20250408
  Serious: Yes (Death, Other)
  Sender: PFIZER
  Company Number: DE-PFIZER INC-202300360141

PATIENT
  Age: 79 Year
  Sex: Male

DRUGS (1)
  1. TAFAMIDIS [Suspect]
     Active Substance: TAFAMIDIS
     Indication: Cardiac amyloidosis
     Dates: start: 202007, end: 202103

REACTIONS (3)
  - Death [Fatal]
  - Empyema [Unknown]
  - Renal failure [Unknown]

NARRATIVE: CASE EVENT DATE: 20210101
